FAERS Safety Report 13510080 (Version 1)
Quarter: 2017Q2

REPORT INFORMATION
  Report Type: Spontaneous
  Country: US (occurrence: US)
  Receive Date: 20170503
  Receipt Date: 20170503
  Transmission Date: 20170830
  Serious: No
  Sender: FDA-Public Use
  Company Number: US-TEVA-764700ACC

PATIENT
  Sex: Female

DRUGS (1)
  1. GENERIC PLAN B ONE STEP [Suspect]
     Active Substance: LEVONORGESTREL
     Indication: POST COITAL CONTRACEPTION
     Route: 065

REACTIONS (4)
  - Intentional product misuse [Recovered/Resolved]
  - Mood altered [Recovered/Resolved]
  - Vaginal discharge [Unknown]
  - Vaginal haemorrhage [Unknown]

NARRATIVE: CASE EVENT DATE: 20170425
